FAERS Safety Report 5001621-8 (Version None)
Quarter: 2006Q2

REPORT INFORMATION
  Report Type: 
  Country: None (occurrence: None)
  Receive Date: 20060511
  Receipt Date: 20060511
  Transmission Date: 20061013
  Serious: Yes (Hospitalization)
  Sender: FDA-Public Use
  Company Number: None

PATIENT
  Age: 21 Year
  Sex: Female
  Weight: 99.3377 kg

DRUGS (8)
  1. CEFTRIAXONE [Suspect]
     Indication: PYELONEPHRITIS
     Dosage: 2 GM DAILY IV
     Route: 042
     Dates: start: 20060411, end: 20060416
  2. CEFTRIAXONE [Suspect]
     Indication: URINARY TRACT INFECTION
     Dosage: 2 GM DAILY IV
     Route: 042
     Dates: start: 20060411, end: 20060416
  3. CEFTRIAXONE [Suspect]
     Indication: PYELONEPHRITIS
     Dosage: 2 GM DAILY IV
     Route: 042
     Dates: start: 20060411, end: 20060416
  4. CEFTRIAXONE [Suspect]
     Indication: URINARY TRACT INFECTION
     Dosage: 2 GM DAILY IV
     Route: 042
     Dates: start: 20060411, end: 20060416
  5. LEXAPRO [Concomitant]
  6. ALLEGRA [Concomitant]
  7. ZANTAC [Concomitant]
  8. IMITREX [Concomitant]

REACTIONS (2)
  - ARTHRALGIA [None]
  - PRURITUS [None]
